FAERS Safety Report 10888663 (Version 3)
Quarter: 2015Q1

REPORT INFORMATION
  Report Type: Report from Study
  Country: JP (occurrence: JP)
  Receive Date: 20150305
  Receipt Date: 20150324
  Transmission Date: 20150721
  Serious: Yes (Hospitalization, Other)
  Sender: FDA-Public Use
  Company Number: JP-GLAXOSMITHKLINE-JP2015JPN027496

PATIENT
  Age: 61 Year
  Sex: Male
  Weight: 65 kg

DRUGS (11)
  1. PARIET [Suspect]
     Active Substance: RABEPRAZOLE SODIUM
     Indication: PROPHYLAXIS
     Dosage: 10 MG, QD
     Route: 048
  2. AZILVA [Suspect]
     Active Substance: AZILSARTAN KAMEDOXOMIL
     Dosage: 20 MG, BID
     Route: 048
     Dates: end: 20140804
  3. ATOVAQUONE. [Suspect]
     Active Substance: ATOVAQUONE
     Indication: ANTIFUNGAL PROPHYLAXIS
     Dosage: 1500 MG, QD
     Route: 048
     Dates: start: 20140731, end: 20140803
  4. KALIMATE [Suspect]
     Active Substance: CALCIUM POLYSTYRENE SULFONATE
     Dosage: 5 G, TID
     Route: 048
     Dates: start: 20140714
  5. DIART [Suspect]
     Active Substance: AZOSEMIDE
     Indication: RENAL IMPAIRMENT
     Dosage: 60 MG, QD
     Route: 048
  6. LANTUS [Suspect]
     Active Substance: INSULIN GLARGINE
     Dosage: 8 IU, QD
     Route: 042
  7. BAYASPIRIN [Suspect]
     Active Substance: ASPIRIN
     Indication: CEREBRAL INFARCTION
     Dosage: 100 MG, QD
     Route: 048
  8. ARTIST [Suspect]
     Active Substance: CARVEDILOL
     Dosage: 7.5 MG, QD
     Route: 048
  9. PREDNISOLONE. [Suspect]
     Active Substance: PREDNISOLONE
     Indication: VASCULITIS
     Dosage: 40 MG, QD
     Route: 048
     Dates: start: 20140731
  10. APIDRA [Suspect]
     Active Substance: INSULIN GLULISINE
     Dosage: 8 IU, TID
     Route: 042
  11. AMLODIPINE [Suspect]
     Active Substance: AMLODIPINE BESYLATE
     Dosage: 5 MG, QD
     Route: 048

REACTIONS (1)
  - Bone marrow failure [Recovering/Resolving]

NARRATIVE: CASE EVENT DATE: 20140804
